FAERS Safety Report 12187242 (Version 3)
Quarter: 2016Q2

REPORT INFORMATION
  Report Type: Report from Study
  Country: US (occurrence: US)
  Receive Date: 20160317
  Receipt Date: 20160504
  Transmission Date: 20160815
  Serious: Yes (Other)
  Sender: FDA-Public Use
  Company Number: US-AMGEN-USASL2016023200

PATIENT
  Age: 74 Year
  Sex: Female
  Weight: 72.57 kg

DRUGS (19)
  1. MAGNESIUM OXIDE. [Concomitant]
     Active Substance: MAGNESIUM OXIDE
     Dosage: 400 MG, TAKE 1 TABLET(S) 3 TIMES A DAY BY ORAL ROUTE AS NEEDED FOR 15 DAY
     Route: 048
     Dates: start: 20160303
  2. DEXAMETHASONE. [Concomitant]
     Active Substance: DEXAMETHASONE
     Dosage: TAKE BY INJECTION ROUTE. 10 MG SIVP PRIOR TO CHEMO
     Dates: start: 20160210
  3. PROMETHAZINE [Concomitant]
     Active Substance: PROMETHAZINE\PROMETHAZINE HYDROCHLORIDE
     Dosage: 25 MG, TAKE 1 TABLET(S) EVERY 4-6 HOURS BY ORAL ROUTE AS NEEDED FOR NAUSEA
     Route: 048
     Dates: start: 20150813
  4. NEULASTA [Suspect]
     Active Substance: PEGFILGRASTIM
     Dosage: 6 MG, EVERY 3 WEEKS BY SUBCUTANEOUS ROUTE
     Route: 058
     Dates: start: 20160210
  5. ANORO ELLIPTA [Concomitant]
     Active Substance: UMECLIDINIUM BROMIDE\VILANTEROL TRIFENATATE
     Dosage: 62.5 MCG-25 MCG, INHALE 1 PUFF(S) EVERY DAY BY INHALATION ROUTE FOR30 DAYS
     Dates: start: 20150928
  6. ALLEGRA ALLERGY [Concomitant]
     Active Substance: FEXOFENADINE HYDROCHLORIDE
     Dosage: UNK
     Dates: start: 20160208
  7. ASPIRIN                            /00002701/ [Concomitant]
     Active Substance: ASPIRIN
     Dosage: TAKE 1 TABLET(S) EVERY DAY BY ORAL ROUTE
     Route: 048
     Dates: start: 20151112
  8. HEPARIN LOCK FLUSH [Concomitant]
     Active Substance: HEPARIN SODIUM
     Dosage: 5 ML, INJECT 5 ML BY INTRAVENOUS ROUTE.
     Route: 042
     Dates: start: 20160210
  9. INTEGRA [Concomitant]
     Dosage: UNK UNK, ONE TAB DAILY
     Dates: start: 20160111
  10. ISOSORBIDE DINITRATE. [Concomitant]
     Active Substance: ISOSORBIDE DINITRATE
     Dosage: TAKE 0.5 TABLET(S) EVERY DAY BY ORAL ROUTE.
     Route: 048
     Dates: start: 20151112
  11. SODIUM CHLORIDE. [Concomitant]
     Active Substance: SODIUM CHLORIDE
     Dosage: 0.9 %, INJECT 100 ML BY INTRAVENOUS ROUTE
     Route: 042
     Dates: start: 20160210
  12. DEXAMETHASONE. [Concomitant]
     Active Substance: DEXAMETHASONE
     Dosage: TAKE 3 TABLET(S) DAY1 WITH EMEND THEN 2 TABLETS D2 AND 3 WITH EMEND THEN 2 TABS ON DAY 4
     Dates: start: 20150921
  13. EMEND [Concomitant]
     Active Substance: APREPITANT
     Dosage: 125 MG, TAKE BY ORAL ROUTE.TAKE AS DIRECTED
     Route: 048
     Dates: start: 20150921
  14. NEULASTA [Suspect]
     Active Substance: PEGFILGRASTIM
     Indication: NEUTROPENIA
     Dosage: 0.6 ML, AS NEEDED BY SUBCUTANEOUS ROUTE AS NEEDED
     Route: 058
     Dates: start: 20151217
  15. CARBOPLATIN. [Concomitant]
     Active Substance: CARBOPLATIN
     Dosage: 10 MG/ML, UNK
     Route: 042
     Dates: start: 20160208
  16. CLONIDINE. [Concomitant]
     Active Substance: CLONIDINE
     Dosage: 0.2MG/24 HRS
     Route: 062
     Dates: start: 20151001
  17. ETOPOSIDE. [Concomitant]
     Active Substance: ETOPOSIDE
     Dosage: 20 MG/ML, INJECT BY INTRAVENOUS ROUTE
     Route: 042
     Dates: start: 20160210
  18. TRAZODONE [Concomitant]
     Active Substance: TRAZODONE HYDROCHLORIDE
     Dosage: 150 MG, TAKE 1 TABLE T(S) EVE RY DAY BY ORAL ROUTE AT BED TIME FOR 30 DAYS.
     Route: 048
     Dates: start: 20151020
  19. ZOFRAN [Concomitant]
     Active Substance: ONDANSETRON HYDROCHLORIDE
     Dosage: 2 MG/ML, UNK
     Route: 042
     Dates: start: 20160210

REACTIONS (33)
  - Haemoglobin abnormal [Unknown]
  - Haematocrit abnormal [Unknown]
  - Orthostatic hypotension [Unknown]
  - Bronchitis [Unknown]
  - Sleep apnoea syndrome [Unknown]
  - Infected bite [Unknown]
  - Essential hypertension [Unknown]
  - Rhinitis allergic [Unknown]
  - Emphysema [Unknown]
  - Musculoskeletal pain [Unknown]
  - Sleep disorder [Unknown]
  - Cough [Unknown]
  - Malaise [Unknown]
  - Decreased appetite [Unknown]
  - Angina pectoris [Unknown]
  - Hypomagnesaemia [Unknown]
  - Fatigue [Unknown]
  - Micturition disorder [Unknown]
  - Nausea [Unknown]
  - Upper respiratory tract infection [Unknown]
  - Hypoglycaemia [Unknown]
  - Abnormal loss of weight [Unknown]
  - Pancytopenia [Unknown]
  - Trigger finger [Unknown]
  - Pain [Unknown]
  - Respiratory symptom [Unknown]
  - Poisoning [Unknown]
  - Hypokalaemia [Unknown]
  - Gastrooesophageal reflux disease [Unknown]
  - Gravitational oedema [Unknown]
  - Adverse reaction [Unknown]
  - Oral candidiasis [Unknown]
  - Osteoporosis [Unknown]

NARRATIVE: CASE EVENT DATE: 20160202
